FAERS Safety Report 5133530-8 (Version None)
Quarter: 2006Q4

REPORT INFORMATION
  Report Type: 
  Country: None (occurrence: None)
  Receive Date: 20061018
  Receipt Date: 20061006
  Transmission Date: 20070319
  Serious: Yes (Hospitalization)
  Sender: FDA-Public Use
  Company Number: MEDI-0004963

PATIENT
  Age: 57 Year
  Sex: Male
  Weight: 105.6881 kg

DRUGS (22)
  1. ETHYOL [Suspect]
     Indication: CHEMOTHERAPY CYTOKINE PROPHYLAXIS
     Dosage: 500 MG, 5 IN 5 D, SUBCUTANEOUS
     Route: 058
     Dates: start: 20060815, end: 20060830
  2. ETHYOL [Suspect]
     Indication: CHEMOTHERAPY CYTOKINE PROPHYLAXIS
     Dosage: 500 MG, 5 IN 5 D, SUBCUTANEOUS
     Route: 058
     Dates: start: 20060907, end: 20060908
  3. ETHYOL [Suspect]
     Indication: CHEMOTHERAPY CYTOKINE PROPHYLAXIS
     Dosage: 500 MG, 5 IN 5 D, SUBCUTANEOUS
     Route: 058
     Dates: start: 20060912, end: 20060912
  4. CISPLATIN [Concomitant]
  5. ERBITUX [Concomitant]
  6. RADIATION THERAPY [Concomitant]
  7. CETIRIZINE HCL                 (CETIRIZINE HYDROCHLORIDE) [Concomitant]
  8. BENADRYL [Concomitant]
  9. ALOXI [Concomitant]
  10. APREPITANT        (APREPITANT) [Concomitant]
  11. PROCHLORPERAZINE MALEATE [Concomitant]
  12. LORAZEPAM [Concomitant]
  13. DEXAMETHASONE TAB [Concomitant]
  14. AMLODIPINE BESYLATE           (AMLODIPINE BESILATE) [Concomitant]
  15. FELODIPINE [Concomitant]
  16. RIFAMPICIN [Concomitant]
  17. MORPHINE SULFATE [Concomitant]
  18. PROCHLORPERAZINE MALEATE                (PROCHLORPERAZINE MALEATE) [Concomitant]
  19. ASPIRIN [Concomitant]
  20. SIMVASTATIN [Concomitant]
  21. CLOTRIMAZOLE [Concomitant]
  22. LISINOPRIL [Concomitant]

REACTIONS (9)
  - CATHETER SEPSIS [None]
  - CHILLS [None]
  - DYSPHAGIA [None]
  - ERYTHEMA [None]
  - NAUSEA [None]
  - ODYNOPHAGIA [None]
  - PYREXIA [None]
  - STOMATITIS [None]
  - VOMITING [None]
